FAERS Safety Report 8197671-3 (Version None)
Quarter: 2012Q1

REPORT INFORMATION
  Report Type: 
  Country: None (occurrence: None)
  Receive Date: 20120309
  Receipt Date: 20120302
  Transmission Date: 20120608
  Serious: Yes (Life-Threatening)
  Sender: FDA-Public Use
  Company Number: JP-PFIZER INC-2011173544

PATIENT
  Age: 83 Year
  Sex: Male
  Weight: 33 kg

DRUGS (9)
  1. ROCEPHIN [Concomitant]
     Indication: SINOBRONCHITIS
     Dosage: 1 G/DAY
     Route: 041
     Dates: start: 20100915, end: 20100922
  2. MUCODYNE [Concomitant]
     Dosage: 3 G/DAY
     Route: 048
  3. MUCOSOLVAN [Concomitant]
     Dosage: 45 MG/DAY
     Route: 048
  4. VITAMEDIN CAPSULE [Concomitant]
     Dosage: 3 DF (CAP), DAILY
     Route: 048
  5. LENDORMIN [Concomitant]
     Dosage: 0.25 MG/DAY
     Route: 048
  6. SELBEX [Concomitant]
     Dosage: 1.5 G/DAY
     Route: 048
  7. ZOSYN [Suspect]
     Indication: SINOBRONCHITIS
     Dosage: 13.5 G
     Route: 041
     Dates: start: 20100912, end: 20100913
  8. FAMOTIDINE [Concomitant]
     Dosage: 20 MG/DAY
     Route: 048
  9. PIPERACILLIN SODIUM [Concomitant]
     Indication: SINOBRONCHITIS
     Dosage: 6 G/DAY
     Route: 041
     Dates: start: 20100913, end: 20100915

REACTIONS (1)
  - RENAL DISORDER [None]
